FAERS Safety Report 10461972 (Version 3)
Quarter: 2014Q4

REPORT INFORMATION
  Report Type: Spontaneous
  Country: JP (occurrence: JP)
  Receive Date: 20140918
  Receipt Date: 20141031
  Transmission Date: 20150528
  Serious: Yes (Death, Hospitalization)
  Sender: FDA-Public Use
  Company Number: JP-EISAI MEDICAL RESEARCH-EC-2014-000071

PATIENT
  Sex: Female

DRUGS (6)
  1. ARICEPT [Suspect]
     Active Substance: DONEPEZIL HYDROCHLORIDE
     Indication: DEMENTIA ALZHEIMER^S TYPE
     Route: 048
     Dates: start: 20140627, end: 20140710
  2. URSO [Concomitant]
     Active Substance: URSODIOL
     Indication: LIVER DISORDER
     Route: 048
     Dates: start: 20140529, end: 20140823
  3. AMLODIPINE [Suspect]
     Active Substance: AMLODIPINE BESYLATE
     Indication: HYPERTENSION
     Route: 048
     Dates: start: 20140529, end: 20140726
  4. ARICEPT [Suspect]
     Active Substance: DONEPEZIL HYDROCHLORIDE
     Route: 048
     Dates: start: 20140711, end: 20140725
  5. URSO [Concomitant]
     Active Substance: URSODIOL
     Indication: HEPATIC ENZYME INCREASED
  6. BONALON 5 MG [Concomitant]
     Indication: OSTEOPOROSIS
     Route: 048
     Dates: end: 20140725

REACTIONS (1)
  - Hepatic failure [Fatal]

NARRATIVE: CASE EVENT DATE: 2014
